FAERS Safety Report 4341556-7 (Version None)
Quarter: 2004Q2

REPORT INFORMATION
  Report Type: 
  Country: None (occurrence: None)
  Receive Date: 20040415
  Receipt Date: 20040402
  Transmission Date: 20050107
  Serious: Yes (Hospitalization)
  Sender: FDA-Public Use
  Company Number: 2004207624US

PATIENT
  Age: 70 Year
  Sex: Male
  Weight: 105 kg

DRUGS (6)
  1. CELEBREX [Suspect]
     Indication: PAIN IN EXTREMITY
     Dosage: 200 MG, BID, ORAL
     Route: 048
     Dates: start: 20040112, end: 20040222
  2. PTK787/ZK 222584 VS PLACEBO() [Suspect]
     Indication: COLORECTAL CANCER METASTATIC
     Dates: start: 20040128, end: 20040221
  3. OXALIPLATIN [Concomitant]
  4. FLUOROURACIL [Concomitant]
  5. LEUCOVORIN CALCIUM [Concomitant]
  6. LORATADINE/PSEUDOEPHEDRINE SULFATE (PSEUDOEPHEDRINE SULFATE) [Concomitant]

REACTIONS (4)
  - DEEP VEIN THROMBOSIS [None]
  - HALLUCINATION [None]
  - MENTAL STATUS CHANGES POSTOPERATIVE [None]
  - PERIRECTAL ABSCESS [None]
